FAERS Safety Report 18943192 (Version 3)
Quarter: 2021Q3

REPORT INFORMATION
  Report Type: Spontaneous
  Country: FR (occurrence: FR)
  Receive Date: 20210226
  Receipt Date: 20210922
  Transmission Date: 20211014
  Serious: Yes (Other)
  Sender: FDA-Public Use
  Company Number: FR-BRISTOL-MYERS SQUIBB COMPANY-BMS-2021-016748

PATIENT
  Age: 86 Year
  Sex: Male

DRUGS (7)
  1. ULTRAVIST [Suspect]
     Active Substance: IOPROMIDE
     Indication: SCAN
     Dosage: UNK
     Route: 042
     Dates: start: 20210125, end: 20210125
  2. KARDEGIC [Suspect]
     Active Substance: ASPIRIN DL-LYSINE
     Indication: CARDIOVASCULAR EVENT PROPHYLAXIS
     Dosage: 1 DOSAGE FORM DAILY
     Route: 048
     Dates: start: 20210121
  3. SYMBICORT [Suspect]
     Active Substance: BUDESONIDE\FORMOTEROL FUMARATE DIHYDRATE
     Indication: PRODUCT USED FOR UNKNOWN INDICATION
     Dosage: UNK
     Route: 055
     Dates: start: 20210119
  4. ELIQUIS [Suspect]
     Active Substance: APIXABAN
     Indication: CARDIOVASCULAR EVENT PROPHYLAXIS
     Dosage: UNK
     Route: 048
     Dates: start: 202101, end: 20210125
  5. BISOCE [Suspect]
     Active Substance: BISOPROLOL
     Indication: ATRIAL FLUTTER
     Dosage: 1 DOSAGE FORM, QD
     Route: 048
     Dates: start: 20210120
  6. ACIDE FOLIQUE [Suspect]
     Active Substance: FOLIC ACID
     Indication: VITAMIN SUPPLEMENTATION
     Dosage: UNK
     Route: 048
     Dates: start: 20210120
  7. LOVENOX [Suspect]
     Active Substance: ENOXAPARIN SODIUM
     Indication: CARDIOVASCULAR EVENT PROPHYLAXIS
     Dosage: 2 DOSAGE FORM, QD
     Route: 058
     Dates: start: 20210125, end: 20210127

REACTIONS (2)
  - Drug eruption [Not Recovered/Not Resolved]
  - Eosinophilia [Recovered/Resolved]

NARRATIVE: CASE EVENT DATE: 20210127
